FAERS Safety Report 22539750 (Version 9)
Quarter: 2023Q4

REPORT INFORMATION
  Report Type: Report from Study
  Country: SG (occurrence: SG)
  Receive Date: 20230609
  Receipt Date: 20231017
  Transmission Date: 20240110
  Serious: Yes (Hospitalization)
  Sender: FDA-Public Use
  Company Number: SG-SA-SAC20230602001010

PATIENT
  Age: 57 Year
  Sex: Male
  Weight: 46.5 kg

DRUGS (16)
  1. DUPILUMAB [Suspect]
     Active Substance: DUPILUMAB
     Indication: Asthma
     Dosage: 600 MG (2 X 300 MG) 1X
     Route: 058
     Dates: start: 20210602, end: 20210602
  2. SERETIDE EVOHALER MITE [Concomitant]
     Indication: Asthma
     Dosage: UNK 4 PUFF
     Route: 055
     Dates: start: 20210120
  3. TIOTROPIUM [Concomitant]
     Active Substance: TIOTROPIUM
     Indication: Asthma
     Dosage: UNK
     Route: 055
     Dates: start: 20210120
  4. ALBUTEROL [Concomitant]
     Active Substance: ALBUTEROL
     Indication: Asthma
     Dosage: 800 UG, PRN
     Route: 055
     Dates: start: 20211006
  5. ACETAMINOPHEN [Concomitant]
     Active Substance: ACETAMINOPHEN
     Indication: Tension headache
     Dosage: 3 G, PRN
     Route: 048
     Dates: start: 20220518
  6. ACETAMINOPHEN [Concomitant]
     Active Substance: ACETAMINOPHEN
     Dosage: 2 DF, QD
     Route: 048
     Dates: start: 20230517, end: 20230518
  7. ATORVASTATIN [Concomitant]
     Active Substance: ATORVASTATIN
     Indication: Coronary artery disease
     Dosage: UNK
     Route: 048
     Dates: start: 20220914
  8. ASPIRIN [Concomitant]
     Active Substance: ASPIRIN
     Indication: Coronary artery disease
     Dosage: UNK
     Route: 048
     Dates: start: 20220914, end: 20230604
  9. ASPIRIN [Concomitant]
     Active Substance: ASPIRIN
     Dosage: UNK
     Route: 048
     Dates: start: 202306
  10. PERINDOPRIL ERBUMINE [Concomitant]
     Active Substance: PERINDOPRIL ERBUMINE
     Indication: Coronary artery disease
     Dosage: UNK
     Route: 048
     Dates: start: 20220914
  11. AMLODIPINE [Concomitant]
     Active Substance: AMLODIPINE BESYLATE
     Indication: Coronary artery disease
     Dosage: UNK
     Route: 048
     Dates: start: 20221021
  12. VALPROATE SODIUM [Concomitant]
     Active Substance: VALPROATE SODIUM
     Indication: Tension headache
     Dosage: UNK
     Route: 048
     Dates: start: 20230421
  13. INFLUENZA VIRUS VACCINE [Concomitant]
     Active Substance: INFLUENZA VIRUS VACCINE
     Dosage: 0.5 ML, 1X
     Route: 030
     Dates: start: 20230517, end: 20230517
  14. FEXOFENADINE HYDROCHLORIDE [Concomitant]
     Active Substance: FEXOFENADINE HYDROCHLORIDE
     Dosage: UNK
     Route: 048
     Dates: start: 20230503, end: 20230507
  15. DEXTROMETHORPHAN HYDROBROMIDE [Concomitant]
     Active Substance: DEXTROMETHORPHAN HYDROBROMIDE
     Dosage: 30 ML, PRN
     Route: 048
     Dates: start: 20230503, end: 20230507
  16. AMOXICILLIN\CLAVULANATE POTASSIUM [Concomitant]
     Active Substance: AMOXICILLIN\CLAVULANATE POTASSIUM
     Dosage: UNK
     Route: 048
     Dates: start: 20230605, end: 20230611

REACTIONS (4)
  - Pneumonia [Recovered/Resolved]
  - Haematuria [Recovered/Resolved]
  - Haemoptysis [Recovered/Resolved]
  - Pain in extremity [Recovered/Resolved]

NARRATIVE: CASE EVENT DATE: 20230529
